FAERS Safety Report 8832316 (Version 4)
Quarter: 2013Q2

REPORT INFORMATION
  Report Type: Spontaneous
  Country: US (occurrence: US)
  Receive Date: 20121009
  Receipt Date: 20130408
  Transmission Date: 20140414
  Serious: Yes (Life-Threatening, Other)
  Sender: FDA-Public Use
  Company Number: US-ASTRAZENECA-2012SE76770

PATIENT
  Age: 42 Year
  Sex: Female

DRUGS (9)
  1. SEROQUEL XR [Suspect]
     Indication: MANIA
     Route: 048
  2. SEROQUEL XR [Suspect]
     Indication: DEPRESSION
     Route: 048
  3. SEROQUEL XR [Suspect]
     Indication: BIPOLAR DISORDER
     Route: 048
  4. SEROQUEL XR [Suspect]
     Indication: MANIA
     Route: 048
  5. SEROQUEL XR [Suspect]
     Indication: DEPRESSION
     Route: 048
  6. SEROQUEL XR [Suspect]
     Indication: BIPOLAR DISORDER
     Route: 048
  7. SEROQUEL XR [Suspect]
     Indication: MANIA
     Route: 048
  8. SEROQUEL XR [Suspect]
     Indication: DEPRESSION
     Route: 048
  9. SEROQUEL XR [Suspect]
     Indication: BIPOLAR DISORDER
     Route: 048

REACTIONS (12)
  - Suicide attempt [Recovering/Resolving]
  - Insomnia [Unknown]
  - Activities of daily living impaired [Unknown]
  - Feelings of worthlessness [Recovering/Resolving]
  - Formication [Recovering/Resolving]
  - Mood swings [Recovering/Resolving]
  - Panic attack [Recovering/Resolving]
  - Emotional disorder [Recovering/Resolving]
  - Feeling of despair [Recovering/Resolving]
  - Tremor [Recovering/Resolving]
  - Presyncope [Recovering/Resolving]
  - Drug dose omission [Recovered/Resolved]
